FAERS Safety Report 21101328 (Version 1)
Quarter: 2022Q3

REPORT INFORMATION
  Report Type: Spontaneous
  Country: US (occurrence: US)
  Receive Date: 20220719
  Receipt Date: 20220719
  Transmission Date: 20221027
  Serious: Yes (Other)
  Sender: FDA-Public Use
  Company Number: US-PFIZER INC-PV202200022486

PATIENT
  Age: 76 Year
  Sex: Male
  Weight: 49.7 kg

DRUGS (9)
  1. NEURONTIN [Suspect]
     Active Substance: GABAPENTIN
     Dosage: 100 MG, 3X/DAY
     Route: 048
     Dates: start: 20220510
  2. HEPARIN SODIUM [Suspect]
     Active Substance: HEPARIN SODIUM
     Dosage: UNK (100 UNITS/ML FLUSH INJECTION 500 UNITS )
     Dates: start: 20211130
  3. CREON [Suspect]
     Active Substance: PANCRELIPASE AMYLASE\PANCRELIPASE LIPASE\PANCRELIPASE PROTEASE
     Dosage: UNK, 3X/DAY (24000-760CN UNITS PER CAPSULE)
     Route: 048
     Dates: start: 20220329
  4. PROSCAR [Suspect]
     Active Substance: FINASTERIDE
     Dosage: 5 MG, DAILY (TAKE 5 MG BY MOUTH DAILY LD )
     Route: 048
     Dates: start: 20210608
  5. NORCO [Suspect]
     Active Substance: ACETAMINOPHEN\HYDROCODONE BITARTRATE
     Indication: Pain
     Dosage: UNK, AS NEEDED (TAKE 1-2 TABLETS BY MOUTH EVERY 4 HOURS AS NEEDED)
     Route: 048
     Dates: start: 20220615
  6. IMODIUM [Suspect]
     Active Substance: LOPERAMIDE HYDROCHLORIDE
     Indication: Diarrhoea
     Dosage: 2 MG (TAKE 1 CAPSULE AFTER EACH LOOSE BOWEL)
     Dates: start: 20211228
  7. NARCAN [Suspect]
     Active Substance: NALOXONE HYDROCHLORIDE
     Dosage: UNK UNK, AS NEEDED (1 SPRAY BY NASAL ROUTE AS NEEDED)
     Dates: start: 20220514
  8. FLOMAX [Suspect]
     Active Substance: TAMSULOSIN HYDROCHLORIDE
     Dosage: 0.4 MG, DAILY (1 CAPSULE BY MOUTH DAILY)
     Route: 048
     Dates: start: 20211216
  9. SHINGRIX [Suspect]
     Active Substance: RECOMBINANT VARICELLA ZOSTER VIRUS (VZV) GLYCOPROTEIN E
     Indication: Pancreatic carcinoma
     Dosage: 0.5 ML (INJECT 0.5 MLS INTO THE EVERY 6 MONTHS REPEAT THE DOSE IN 2-6 MONTHS)
     Route: 030
     Dates: start: 20220303

REACTIONS (11)
  - Carcinoembryonic antigen increased [Unknown]
  - Abdominal pain [Unknown]
  - Weight decreased [Unknown]
  - Blood glucose increased [Unknown]
  - Carbohydrate antigen 19-9 increased [Unknown]
  - White blood cell count decreased [Unknown]
  - Red blood cell count decreased [Unknown]
  - Haemoglobin decreased [Unknown]
  - Haematocrit decreased [Unknown]
  - Platelet count decreased [Unknown]
  - Blood pressure decreased [Unknown]

NARRATIVE: CASE EVENT DATE: 20220415
